FAERS Safety Report 8156015-3 (Version None)
Quarter: 2012Q1

REPORT INFORMATION
  Report Type: 
  Country: None (occurrence: None)
  Receive Date: 20120222
  Receipt Date: 20120214
  Transmission Date: 20120608
  Serious: Yes (Death)
  Sender: FDA-Public Use
  Company Number: IN-GENZYME-POMP-1001895

PATIENT

DRUGS (4)
  1. MYOZYME [Suspect]
     Indication: GLYCOGEN STORAGE DISEASE TYPE II
     Dosage: UNK
     Route: 042
     Dates: start: 20111029
  2. METHOTREXATE [Suspect]
     Indication: IMMUNOSUPPRESSION
     Dosage: 2 MG, UNK
     Route: 065
     Dates: start: 20111029, end: 20111101
  3. RITUXIMAB [Suspect]
     Indication: IMMUNOSUPPRESSION
     Dosage: 75 MG, UNK
     Route: 065
     Dates: start: 20111028, end: 20111103
  4. IMMUNE GLOBULIN NOS [Suspect]
     Indication: IMMUNOGLOBULIN THERAPY
     Dosage: 2.5 G, UNK
     Route: 042
     Dates: start: 20111101, end: 20111104

REACTIONS (2)
  - RESPIRATORY FAILURE [None]
  - PYREXIA [None]
